FAERS Safety Report 9163645 (Version 1)
Quarter: 2013Q1

REPORT INFORMATION
  Report Type: Spontaneous
  Country: US (occurrence: US)
  Receive Date: 20130314
  Receipt Date: 20130314
  Transmission Date: 20140127
  Serious: Yes (Other)
  Sender: FDA-Public Use
  Company Number: US-ABBOTT-13P-163-1059198-00

PATIENT
  Age: 22 Month
  Sex: Male

DRUGS (1)
  1. CEFDINIR [Suspect]
     Indication: PHARYNGITIS

REACTIONS (1)
  - Serum sickness-like reaction [Recovered/Resolved]
